FAERS Safety Report 22630785 (Version 1)
Quarter: 2023Q2

REPORT INFORMATION
  Report Type: Spontaneous
  Country: US (occurrence: US)
  Receive Date: 20230622
  Receipt Date: 20230622
  Transmission Date: 20230722
  Serious: No
  Sender: FDA-Public Use
  Company Number: US-PFIZER INC-PV202200132400

PATIENT
  Age: 76 Year
  Sex: Female
  Weight: 67.13 kg

DRUGS (4)
  1. IBRANCE [Suspect]
     Active Substance: PALBOCICLIB
     Indication: Breast cancer stage IV
     Dosage: ONCE A DAY FOR 21 DAYS, THEN OFF 7 DAYS
     Route: 048
     Dates: start: 20221227
  2. ANASTROZOLE [Concomitant]
     Active Substance: ANASTROZOLE
     Indication: Antioestrogen therapy
     Dosage: 1 MG, 1X/DAY
     Route: 048
     Dates: start: 202301
  3. CALCIUM [Concomitant]
     Active Substance: CALCIUM
     Indication: Supplementation therapy
     Dosage: 600 MG, 1X/DAY
     Route: 048
     Dates: start: 202301
  4. LISINOPRIL [Concomitant]
     Active Substance: LISINOPRIL
     Indication: Hypertension
     Dosage: 12.5 MG, 2X/DAY
     Route: 048
     Dates: start: 1989

REACTIONS (3)
  - Tooth loss [Unknown]
  - Weight increased [Unknown]
  - Weight decreased [Unknown]
